FAERS Safety Report 15439381 (Version 2)
Quarter: 2019Q1

REPORT INFORMATION
  Report Type: Other
  Country: CA (occurrence: CA)
  Receive Date: 20180928
  Receipt Date: 20190118
  Transmission Date: 20190417
  Serious: Yes (Other)
  Sender: FDA-Public Use
  Company Number: CA-GLENMARK PHARMACEUTICALS-2018GMK037482

PATIENT

DRUGS (2)
  1. XELJANZ [Concomitant]
     Active Substance: TOFACITINIB CITRATE
     Indication: RHEUMATOID ARTHRITIS
     Dosage: 5 MG, BID
     Route: 048
  2. GABAPENTIN. [Suspect]
     Active Substance: GABAPENTIN
     Indication: HEADACHE
     Dosage: UNK
     Route: 065

REACTIONS (5)
  - Diverticulitis [Unknown]
  - Fall [Unknown]
  - Pelvic fracture [Unknown]
  - Hypersensitivity [Unknown]
  - Drug ineffective for unapproved indication [Unknown]
